FAERS Safety Report 9011933 (Version 1)
Quarter: 2013Q1

REPORT INFORMATION
  Report Type: Spontaneous
  Country: FR (occurrence: FR)
  Receive Date: 20130107
  Receipt Date: 20130107
  Transmission Date: 20140127
  Serious: Yes (Hospitalization)
  Sender: FDA-Public Use
  Company Number: FR-ROCHE-1176616

PATIENT
  Age: 41 Year
  Sex: Female

DRUGS (5)
  1. HERCEPTIN [Suspect]
     Indication: BREAST CANCER
     Route: 042
     Dates: start: 20120531
  2. EFFEXOR [Concomitant]
     Route: 065
  3. IMOVANE [Concomitant]
     Route: 065
  4. LYRICA [Concomitant]
     Route: 065
  5. CODOLIPRANE [Concomitant]
     Dosage: 4 TO 6 TABLETS DAILY.
     Route: 065

REACTIONS (4)
  - Liver disorder [Recovered/Resolved]
  - Abdominal pain upper [Recovered/Resolved]
  - Vomiting [Recovered/Resolved]
  - Asthenia [Recovered/Resolved]
